FAERS Safety Report 23930664 (Version 1)
Quarter: 2024Q2

REPORT INFORMATION
  Report Type: Spontaneous
  Country: FR (occurrence: FR)
  Receive Date: 20240603
  Receipt Date: 20240603
  Transmission Date: 20240716
  Serious: Yes (Death)
  Sender: FDA-Public Use
  Company Number: None

PATIENT
  Age: 69 Year
  Sex: Male
  Weight: 64.4 kg

DRUGS (2)
  1. YERVOY [Suspect]
     Active Substance: IPILIMUMAB
     Indication: Sarcomatoid mesothelioma
     Route: 042
     Dates: start: 20240507, end: 20240507
  2. OPDIVO [Suspect]
     Active Substance: NIVOLUMAB
     Indication: Sarcomatoid mesothelioma
     Route: 042
     Dates: start: 20240507, end: 20240507

REACTIONS (1)
  - Lung disorder [Fatal]

NARRATIVE: CASE EVENT DATE: 20240513
